FAERS Safety Report 18450513 (Version 3)
Quarter: 2022Q4

REPORT INFORMATION
  Report Type: Spontaneous
  Country: US (occurrence: US)
  Receive Date: 20201030
  Receipt Date: 20221201
  Transmission Date: 20230113
  Serious: No
  Sender: FDA-Public Use
  Company Number: US-PFIZER INC-2020420131

PATIENT
  Age: 50 Year
  Sex: Female

DRUGS (1)
  1. XELJANZ XR [Suspect]
     Active Substance: TOFACITINIB CITRATE
     Indication: Rheumatoid arthritis
     Dosage: 11 MG, 1X/DAY
     Route: 048
     Dates: start: 2017

REACTIONS (6)
  - Sinusitis [Unknown]
  - Arthralgia [Unknown]
  - Malaise [Unknown]
  - Discouragement [Unknown]
  - Therapeutic response unexpected [Unknown]
  - Product dose omission in error [Unknown]
